FAERS Safety Report 17283809 (Version 1)
Quarter: 2020Q1

REPORT INFORMATION
  Report Type: Spontaneous
  Country: DE (occurrence: DE)
  Receive Date: 20200117
  Receipt Date: 20200117
  Transmission Date: 20200409
  Serious: Yes (Hospitalization, Other)
  Sender: FDA-Public Use
  Company Number: DE-PFIZER INC-2020018305

PATIENT
  Age: 80 Year
  Sex: Male

DRUGS (10)
  1. TAMSULOSIN HYDROCHLORIDE. [Suspect]
     Active Substance: TAMSULOSIN HYDROCHLORIDE
     Indication: PROSTATIC DISORDER
     Dosage: 0.4 MG, 1X/DAY
  2. TROMCARDIN COMPLEX [Suspect]
     Active Substance: DIETARY SUPPLEMENT
     Dosage: 2 DF, 1X/DAY
  3. GLUCOBAY [Suspect]
     Active Substance: ACARBOSE
     Dosage: 50 MG, 3X/DAY
  4. ACETYLSALICYLIC ACID [Concomitant]
     Active Substance: ASPIRIN
     Dosage: 100 MG, 1X/DAY
  5. DEXAMETHASONE\NEOMYCIN SULFATE [Concomitant]
     Active Substance: DEXAMETHASONE\NEOMYCIN SULFATE
     Dosage: 4 DF, 1X/DAY (STRENGTH: 2.45 MG/1 MG/ 1 ML; DOSE: 4X1)
  6. VIGANTOLETTEN [Concomitant]
     Active Substance: CHOLECALCIFEROL
     Dosage: 3000 IU, 1X/DAY
  7. ATORVASTATIN CALCIUM. [Suspect]
     Active Substance: ATORVASTATIN CALCIUM
     Indication: DYSLIPIDAEMIA
     Dosage: 40 MG, 1X/DAY
  8. JANUMET [Suspect]
     Active Substance: METFORMIN HYDROCHLORIDE\SITAGLIPTIN PHOSPHATE
     Indication: TYPE 2 DIABETES MELLITUS
     Dosage: 1 DF, 2X/DAY (50/1000 MG)
     Route: 048
     Dates: end: 20190812
  9. MAGNETRANS FORTE [Suspect]
     Active Substance: MAGNESIUM OXIDE
     Dosage: 150 MG, 2X/DAY
  10. RAMIPRIL. [Concomitant]
     Active Substance: RAMIPRIL
     Dosage: 5 MG, 1X/DAY

REACTIONS (5)
  - Cerebrovascular accident [Unknown]
  - Weight decreased [Unknown]
  - Hepatitis cholestatic [Recovered/Resolved]
  - Prostatic specific antigen increased [Recovered/Resolved]
  - Drug-induced liver injury [Recovered/Resolved]

NARRATIVE: CASE EVENT DATE: 201812
